FAERS Safety Report 5841541-X (Version None)
Quarter: 2008Q3

REPORT INFORMATION
  Report Type: 
  Country: None (occurrence: None)
  Receive Date: 20080731
  Receipt Date: 20080624
  Transmission Date: 20090109
  Serious: No
  Sender: FDA-Public Use
  Company Number: US200806005614

PATIENT
  Age: 65 Year
  Sex: Female

DRUGS (14)
  1. BYETTA [Suspect]
     Indication: INSULIN-REQUIRING TYPE 2 DIABETES MELLITUS
     Dosage: 10 UG, 2/D, SUBCUTANEOUS
     Route: 058
     Dates: start: 20080622
  2. EXENATIDE 10MCG PEN, DISPOSABLE DEVICE (EXENATIDE PEN (10MCG)) PEN,DIS [Concomitant]
  3. LANTUS [Concomitant]
  4. SINGULAIR [Concomitant]
  5. TRIAMTERENE AND HYDROCHLOROTHIAZID (HYDROCHLOROTHIAZIDE, TRIAMTERENE) [Concomitant]
  6. POTASSIUM (POTASSIUM) [Concomitant]
  7. OMEPRAZOLE [Concomitant]
  8. SIMVASTATIN [Concomitant]
  9. ZOLPIDEM TARTRATE [Concomitant]
  10. AMLODIPINE [Concomitant]
  11. LISINOPRIL /USA/ (LISINOPRIL) [Concomitant]
  12. IRON (IRON) [Concomitant]
  13. ASPIRIN [Concomitant]
  14. MIRALAX [Concomitant]

REACTIONS (4)
  - CHILLS [None]
  - FEELING COLD [None]
  - HYPERHIDROSIS [None]
  - VOMITING [None]
